FAERS Safety Report 5019571-X (Version None)
Quarter: 2006Q2

REPORT INFORMATION
  Report Type: 
  Country: None (occurrence: None)
  Receive Date: 20060531
  Receipt Date: 20060526
  Transmission Date: 20061013
  Serious: Yes (Death, Hospitalization)
  Sender: FDA-Public Use
  Company Number: 200612154GDS

PATIENT
  Age: 92 Year
  Sex: Male

DRUGS (10)
  1. ASPIRIN [Suspect]
     Dosage: 100 MG, TOTAL DAILY, ORAL
     Route: 048
     Dates: start: 20051130, end: 20051207
  2. CLOPIDOGREL [Suspect]
     Dosage: 75 MG, TOTAL DAILY, ORAL
     Route: 048
     Dates: start: 20051130, end: 20051207
  3. DICLOFENAC POTASSIUM [Suspect]
     Dosage: ORAL
     Route: 048
     Dates: end: 20051129
  4. FINASTERIDE [Concomitant]
  5. MOLSIDOMINE [Concomitant]
  6. TORSEMIDE [Concomitant]
  7. ENALAPRIL [Concomitant]
  8. DILTIAZEM [Concomitant]
  9. ENALAPRIL MALEATE AND HYDROCHLOROTHIAZIDE [Concomitant]
  10. COLECALCIFEROL-CA [Concomitant]

REACTIONS (3)
  - ANAEMIA [None]
  - GASTRIC ULCER HAEMORRHAGE [None]
  - HYPOVOLAEMIC SHOCK [None]
